FAERS Safety Report 8617239-1 (Version None)
Quarter: 2012Q3

REPORT INFORMATION
  Report Type: 
  Country: None (occurrence: None)
  Receive Date: 20120823
  Receipt Date: 20120814
  Transmission Date: 20120928
  Serious: Yes (Hospitalization)
  Sender: FDA-Public Use
  Company Number: US-ASTRAZENECA-2010SE57777

PATIENT
  Age: 60 Year
  Sex: Male
  Weight: 90.7 kg

DRUGS (58)
  1. SEROQUEL [Suspect]
     Indication: SLEEP DISORDER
     Route: 048
     Dates: start: 20100208
  2. SEROQUEL [Suspect]
     Route: 048
     Dates: start: 20100423
  3. SEROQUEL [Suspect]
     Route: 048
     Dates: start: 20100401
  4. SEROQUEL [Suspect]
     Route: 048
     Dates: start: 20100401
  5. SEROQUEL [Suspect]
     Route: 048
  6. SEROQUEL [Suspect]
     Route: 048
  7. FISH OIL [Concomitant]
  8. SEROQUEL [Suspect]
     Route: 048
     Dates: start: 20100423
  9. SEROQUEL [Suspect]
     Dosage: TAKING 300 MG ONE AND 400 MG ONE AT NIGHT
     Route: 048
  10. SEROQUEL [Suspect]
     Route: 048
  11. SEROQUEL [Suspect]
     Route: 048
     Dates: start: 20100208
  12. SEROQUEL [Suspect]
     Route: 048
     Dates: start: 20100423
  13. SEROQUEL [Suspect]
     Route: 048
  14. CALCIUM [Concomitant]
  15. TOPAMAX [Concomitant]
  16. IRON PILLS [Concomitant]
  17. NEXIUM [Suspect]
     Indication: GASTROOESOPHAGEAL REFLUX DISEASE
     Route: 048
  18. SEROQUEL [Suspect]
     Route: 048
     Dates: start: 20100423
  19. SEROQUEL [Suspect]
     Route: 048
     Dates: start: 20100423
  20. SEROQUEL [Suspect]
     Route: 048
     Dates: start: 20100401
  21. LEVOTHYROXINE SODIUM [Concomitant]
  22. WELLBUTRIN XL [Concomitant]
  23. IONPILL FERROUS SULFATE [Concomitant]
  24. ATIVAN [Concomitant]
  25. JANUVIA [Concomitant]
  26. NEXIUM [Suspect]
     Route: 048
  27. SEROQUEL [Suspect]
     Indication: BIPOLAR DISORDER
     Route: 048
     Dates: start: 20100208
  28. SEROQUEL [Suspect]
     Route: 048
     Dates: start: 20100423
  29. SEROQUEL [Suspect]
     Route: 048
  30. SEROQUEL [Suspect]
     Route: 048
  31. SEROQUEL [Suspect]
     Route: 048
  32. LISINOPRIL [Concomitant]
     Route: 048
  33. GLIPIZIDE [Concomitant]
     Dosage: 2, 5 MG BID
  34. DEPAKOTE [Concomitant]
  35. SEROQUEL [Suspect]
     Route: 048
     Dates: start: 20100423
  36. SEROQUEL [Suspect]
     Route: 048
  37. SEROQUEL [Suspect]
     Route: 048
  38. GLIPIZIDE [Concomitant]
  39. BUTRIN [Concomitant]
  40. SEROQUEL [Suspect]
     Indication: DEPRESSION
     Route: 048
     Dates: start: 20100208
  41. SEROQUEL [Suspect]
     Route: 048
     Dates: start: 20100401
  42. VIT C [Concomitant]
  43. LEVOTHYROXINE SODIUM [Concomitant]
  44. LORAZEPAM [Concomitant]
  45. SIMVASTATIN [Concomitant]
  46. SEROQUEL [Suspect]
     Route: 048
     Dates: start: 20100423
  47. SEROQUEL [Suspect]
     Dosage: TAKING 300 MG ONE AND 400 MG ONE AT NIGHT
     Route: 048
  48. SEROQUEL [Suspect]
     Dosage: TAKING 300 MG ONE AND 400 MG ONE AT NIGHT
     Route: 048
  49. SEROQUEL [Suspect]
     Dosage: TAKING 300 MG ONE AND 400 MG ONE AT NIGHT
     Route: 048
  50. SEROQUEL [Suspect]
     Route: 048
  51. SEROQUEL [Suspect]
     Route: 048
  52. SEROQUEL [Suspect]
     Route: 048
  53. LORAZEPAM [Concomitant]
     Indication: BIPOLAR DISORDER
  54. TOPAMAX [Concomitant]
     Indication: BIPOLAR DISORDER
     Dosage: TWICE A DAY
  55. GLICLAZIDE [Concomitant]
  56. EYE DROPS [Concomitant]
  57. LUMIGAN [Concomitant]
     Dosage: OU, ONE DROP
  58. CENTRUM ULTRUM [Concomitant]

REACTIONS (33)
  - BLOOD GLUCOSE FLUCTUATION [None]
  - DIABETES MELLITUS [None]
  - IMPAIRED SELF-CARE [None]
  - RHINORRHOEA [None]
  - MEMORY IMPAIRMENT [None]
  - FATIGUE [None]
  - INAPPROPRIATE AFFECT [None]
  - DYSPHAGIA [None]
  - SOMNOLENCE [None]
  - ANAEMIA [None]
  - PAIN IN EXTREMITY [None]
  - WEIGHT FLUCTUATION [None]
  - CONSTIPATION [None]
  - DIET NONCOMPLIANCE [None]
  - POLLAKIURIA [None]
  - HEADACHE [None]
  - PRURITUS [None]
  - WEIGHT INCREASED [None]
  - OFF LABEL USE [None]
  - INSOMNIA [None]
  - ERUCTATION [None]
  - GAIT DISTURBANCE [None]
  - DYSPNOEA EXERTIONAL [None]
  - DRUG DOSE OMISSION [None]
  - FAECAL INCONTINENCE [None]
  - NERVOUSNESS [None]
  - NERVOUS SYSTEM DISORDER [None]
  - DYSPNOEA [None]
  - PSYCHOMOTOR HYPERACTIVITY [None]
  - SEDATION [None]
  - CHEILITIS [None]
  - BLOOD GLUCOSE INCREASED [None]
  - MALAISE [None]
